FAERS Safety Report 20727773 (Version 1)
Quarter: 2022Q2

REPORT INFORMATION
  Report Type: Spontaneous
  Country: US (occurrence: None)
  Receive Date: 20220419
  Receipt Date: 20220419
  Transmission Date: 20220721
  Serious: Yes (Other)
  Sender: FDA-Public Use
  Company Number: US-ROCHE-2942759

PATIENT
  Sex: Female

DRUGS (3)
  1. KADCYLA [Suspect]
     Active Substance: ADO-TRASTUZUMAB EMTANSINE
     Indication: HER2 positive breast cancer
     Dosage: 3.6MG/KG ;ONGOING: NO
     Route: 042
  2. KADCYLA [Suspect]
     Active Substance: ADO-TRASTUZUMAB EMTANSINE
     Dosage: 3.0MG/KG ;ONGOING: NO
     Route: 042
  3. KADCYLA [Suspect]
     Active Substance: ADO-TRASTUZUMAB EMTANSINE
     Dosage: 2.4MG/KG ;ONGOING: UNKNOWN
     Route: 042

REACTIONS (2)
  - Thrombocytopenia [Unknown]
  - Haemorrhage [Unknown]
